FAERS Safety Report 4535268-4 (Version None)
Quarter: 2004Q4

REPORT INFORMATION
  Report Type: 
  Country: None (occurrence: None)
  Receive Date: 20041214
  Receipt Date: 20040927
  Transmission Date: 20050328
  Serious: No
  Sender: FDA-Public Use
  Company Number: 2004237585US

PATIENT
  Age: 83 Year
  Sex: Male
  Weight: 64.4 kg

DRUGS (5)
  1. BEXTRA [Suspect]
     Indication: ARTHRALGIA
     Dosage: 20 MG, QD, ORAL
     Route: 048
     Dates: start: 20040901
  2. GLUCOSAMINE CHONDROITIN (GLUCOSAMINE CHONDROITIN) [Suspect]
     Indication: ARTHRALGIA
  3. PROCARDIA [Concomitant]
  4. MULTIVITAMIN [Concomitant]
  5. ^OVER THE COUNTER EXPECTORANT^ [Concomitant]

REACTIONS (5)
  - DYSPNOEA [None]
  - ERUCTATION [None]
  - NASAL DISCOMFORT [None]
  - RESPIRATORY TRACT INFECTION [None]
  - STOMACH DISCOMFORT [None]
